FAERS Safety Report 8171952-1 (Version None)
Quarter: 2012Q1

REPORT INFORMATION
  Report Type: 
  Country: None (occurrence: None)
  Receive Date: 20120228
  Receipt Date: 20120217
  Transmission Date: 20120608
  Serious: Yes (Other)
  Sender: FDA-Public Use
  Company Number: US-CELGENEUS-163-21880-11092609

PATIENT
  Age: 83 Year
  Sex: Male

DRUGS (9)
  1. PROSTA [Concomitant]
     Dosage: 2 TABLET
     Route: 065
  2. KLOR-CON [Concomitant]
     Dosage: 20 MILLIEQUIVALENTS
     Route: 048
  3. REVLIMID [Suspect]
     Dosage: 2.5 MILLIGRAM
     Route: 048
     Dates: start: 20090720, end: 20110809
  4. ZOFRAN [Concomitant]
     Dosage: 8 MILLIGRAM
     Route: 048
  5. ACYCLOVIR [Concomitant]
     Dosage: 400 MILLIGRAM
     Route: 065
  6. INDOPAMIDE [Concomitant]
     Dosage: 2.5 MILLIGRAM
     Route: 065
  7. RADIATION THERAPY [Concomitant]
     Dosage: 66 GY
     Route: 065
     Dates: start: 20111003
  8. RADIATION THERAPY [Concomitant]
     Dosage: 44 GY
     Route: 065
     Dates: start: 20111028
  9. RADIATION THERAPY [Concomitant]
     Route: 065
     Dates: start: 20111114

REACTIONS (2)
  - SQUAMOUS CELL CARCINOMA [None]
  - MALIGNANT MELANOMA IN SITU [None]
